FAERS Safety Report 10275410 (Version 2)
Quarter: 2014Q3

REPORT INFORMATION
  Report Type: Spontaneous
  Country: HK (occurrence: HK)
  Receive Date: 20140703
  Receipt Date: 20140711
  Transmission Date: 20150326
  Serious: Yes (Hospitalization, Other)
  Sender: FDA-Public Use
  Company Number: HK-PAR PHARMACEUTICAL, INC-2014SCPR009215

PATIENT

DRUGS (1)
  1. KETALAR [Suspect]
     Active Substance: KETAMINE HYDROCHLORIDE
     Indication: DRUG DIVERSION
     Dosage: UNK, UNKNOWN
     Route: 065

REACTIONS (5)
  - Liver injury [Unknown]
  - Hydronephrosis [Unknown]
  - Cystitis [Unknown]
  - Drug abuse [Unknown]
  - Biliary tract disorder [Unknown]
